FAERS Safety Report 10594194 (Version 1)
Quarter: 2014Q4

REPORT INFORMATION
  Report Type: Report from Study
  Country: FI (occurrence: FI)
  Receive Date: 20141119
  Receipt Date: 20141119
  Transmission Date: 20150529
  Serious: Yes (Other)
  Sender: FDA-Public Use
  Company Number: FI-RB PHARMACEUTICALS LIMITED-RB-73068-2014

PATIENT
  Age: 46 Year
  Sex: Female

DRUGS (5)
  1. SUBUTEX [Suspect]
     Active Substance: BUPRENORPHINE HYDROCHLORIDE
     Dosage: CURRENTLY USING EVERY DAY
     Route: 045
  2. BENZOS (BENZODIAZEPINE) [Suspect]
     Active Substance: BENZODIAZEPINE
     Indication: PRODUCT USED FOR UNKNOWN INDICATION
     Dosage: UNK
     Route: 065
  3. SUBOXONE [Suspect]
     Active Substance: BUPRENORPHINE HYDROCHLORIDE\NALOXONE HYDROCHLORIDE
     Dosage: CURRENTLY USING EVERY DAY
     Route: 045
  4. SUBUTEX [Suspect]
     Active Substance: BUPRENORPHINE HYDROCHLORIDE
     Indication: DRUG DEPENDENCE
     Dosage: CURRENTLY USING EVERY DAY
     Route: 051
  5. SUBOXONE [Suspect]
     Active Substance: BUPRENORPHINE HYDROCHLORIDE\NALOXONE HYDROCHLORIDE
     Indication: DRUG DEPENDENCE
     Dosage: CURRENTLY USING EVERY DAY
     Route: 051

REACTIONS (4)
  - Hepatitis C [Unknown]
  - Intentional product misuse [Not Recovered/Not Resolved]
  - Substance abuse [Not Recovered/Not Resolved]
  - Drug dependence [Not Recovered/Not Resolved]
